FAERS Safety Report 4885651-2 (Version None)
Quarter: 2005Q4

REPORT INFORMATION
  Report Type: 
  Country: None (occurrence: None)
  Receive Date: 20051220
  Receipt Date: 20050204
  Transmission Date: 20060501
  Serious: Yes (Death)
  Sender: FDA-Public Use
  Company Number: HQWYE140607FEB05

PATIENT
  Age: 38 Year
  Sex: Female
  Weight: 77.18 kg

DRUGS (6)
  1. EFFEXOR XR [Suspect]
     Indication: DEPRESSION
     Dosage: OVERDOSE AMAOUNT , ORAL
     Route: 048
     Dates: start: 20040401, end: 20040401
  2. DIAZEPAM [Suspect]
     Dosage: OVERDOSE
  3. HYDROCODONE BITARTRATE [Suspect]
     Dosage: OVERDOSE AMOUNT
  4. METHADONE HCL [Suspect]
     Dosage: OVERDOSE AMOUNT
  5. RISPERDAL [Concomitant]
  6. DEPAKOTE [Concomitant]

REACTIONS (2)
  - COMPLETED SUICIDE [None]
  - INTENTIONAL OVERDOSE [None]
